FAERS Safety Report 9889213 (Version 1)
Quarter: 2014Q1

REPORT INFORMATION
  Report Type: Report from Study
  Country: US (occurrence: US)
  Receive Date: 20140211
  Receipt Date: 20140211
  Transmission Date: 20141002
  Serious: Yes (Hospitalization)
  Sender: FDA-Public Use
  Company Number: US-PURDUE-USA-2014-0111008

PATIENT
  Age: 50 Year
  Sex: Female

DRUGS (1)
  1. BTDS PATCH [Suspect]
     Indication: OSTEOARTHRITIS
     Dosage: 20 MCG/HR, WEEKLY
     Route: 062
     Dates: start: 20131127

REACTIONS (1)
  - Asthma [Recovered/Resolved]
